FAERS Safety Report 25657986 (Version 1)
Quarter: 2025Q3

REPORT INFORMATION
  Report Type: Report from Study
  Country: US (occurrence: US)
  Receive Date: 20250808
  Receipt Date: 20250808
  Transmission Date: 20251021
  Serious: Yes (Other)
  Sender: ALEXION PHARMACEUTICALS
  Company Number: US-AstraZeneca-CH-00924218A

PATIENT
  Sex: Male

DRUGS (1)
  1. STRENSIQ [Suspect]
     Active Substance: ASFOTASE ALFA
     Route: 065

REACTIONS (10)
  - Tunnel vision [Unknown]
  - Loss of consciousness [Unknown]
  - Seizure [Unknown]
  - Syncope [Unknown]
  - Apnoea [Unknown]
  - Feeling hot [Unknown]
  - Muscular weakness [Unknown]
  - Mydriasis [Unknown]
  - Erythema [Unknown]
  - Hyperhidrosis [Unknown]
